FAERS Safety Report 8491179-3 (Version None)
Quarter: 2012Q2

REPORT INFORMATION
  Report Type: 
  Country: None (occurrence: None)
  Receive Date: 20120627
  Receipt Date: 20120619
  Transmission Date: 20120825
  Serious: Yes (Other)
  Sender: FDA-Public Use
  Company Number: ADR-2012-00797

PATIENT
  Sex: Female

DRUGS (3)
  1. HYDROMORPHONE HCL [Concomitant]
  2. BACLOFEN [Suspect]
     Indication: PAIN
     Dosage: 158.36 MCG/DAY
  3. BACLOFEN [Suspect]
     Indication: POST LAMINECTOMY SYNDROME
     Dosage: 158.36 MCG/DAY

REACTIONS (2)
  - ERYTHEMA [None]
  - PAIN IN EXTREMITY [None]
